FAERS Safety Report 19226190 (Version 2)
Quarter: 2021Q2

REPORT INFORMATION
  Report Type: Report from Study
  Country: None (occurrence: NL)
  Receive Date: 20210506
  Receipt Date: 20210510
  Transmission Date: 20210717
  Serious: Yes (Other)
  Sender: FDA-Public Use
  Company Number: NL-ABBVIE-18K-114-2414080-00

PATIENT
  Sex: Male

DRUGS (14)
  1. DUODOPA [Suspect]
     Active Substance: CARBIDOPA\LEVODOPA
     Dosage: MD: 3.1 CD 4.2 ED: 3.0 ND 4.5 CND: 2.2 END: 1.5 WITH 3 HOUR?LOCK
     Route: 050
     Dates: start: 2019
  2. MACROGOL [Concomitant]
     Active Substance: POLYETHYLENE GLYCOLS
     Indication: ABNORMAL FAECES
  3. DUODOPA [Suspect]
     Active Substance: CARBIDOPA\LEVODOPA
     Dosage: MD 3.0 CD 4.2 ED 1.5 MDN 4.5 CDN 2.5 EDN 1.5
     Route: 050
     Dates: start: 2019, end: 2019
  4. DUODOPA [Suspect]
     Active Substance: CARBIDOPA\LEVODOPA
     Dosage: MD: 3.0 ML, CD: 4.3 ML/H, ED: 1.5 ML, NIGHT: MD: 4.5 ML, CND: 2.2 ML/H, END: 1.5 ML
     Route: 050
  5. CLOZAPINE. [Concomitant]
     Active Substance: CLOZAPINE
     Indication: PRODUCT USED FOR UNKNOWN INDICATION
  6. MOVICOLON [Concomitant]
     Active Substance: POLYETHYLENE GLYCOL 3350\POTASSIUM CHLORIDE\SODIUM BICARBONATE\SODIUM CHLORIDE
     Indication: PRODUCT USED FOR UNKNOWN INDICATION
  7. DUODOPA [Suspect]
     Active Substance: CARBIDOPA\LEVODOPA
     Dosage: MDN 4.5, CDN 2.2 EDN 1.5
     Route: 050
     Dates: start: 2019, end: 2019
  8. DUODOPA [Suspect]
     Active Substance: CARBIDOPA\LEVODOPA
     Dosage: MD 3.0 ML; CD 4.2 ML/H; ED 1.5 ML; ND 4.5 ML; CND 2.2 ML/H; END 1.5 ML
     Route: 050
  9. PAROXETINE. [Concomitant]
     Active Substance: PAROXETINE
     Indication: PRODUCT USED FOR UNKNOWN INDICATION
  10. SILVER NITRATE. [Concomitant]
     Active Substance: SILVER NITRATE
     Indication: PRODUCT USED FOR UNKNOWN INDICATION
  11. DUODOPA [Suspect]
     Active Substance: CARBIDOPA\LEVODOPA
     Indication: PARKINSON^S DISEASE
     Dosage: MD: 7.5 CD:4.2  ED: 1.5  ND: 2.2, ED 3 TO 4 TIMES A DAY.
     Route: 050
     Dates: start: 20091105, end: 20191105
  12. DUODOPA [Suspect]
     Active Substance: CARBIDOPA\LEVODOPA
     Dosage: MD 3.0 ML; CD 4.3 ML/H; ED 3.0 ML; CND 2.2 ML/H
     Route: 050
  13. LAXANS [Concomitant]
     Indication: ABNORMAL FAECES
  14. DUODOPA [Suspect]
     Active Substance: CARBIDOPA\LEVODOPA
     Dosage: MD: 0.0, CD: 4.2, ED: 1.5, 24 HOURS ADMINISTRATION,  5 ED.
     Route: 050
     Dates: start: 20091106, end: 2019

REACTIONS (49)
  - Cerebrovascular accident [Recovered/Resolved]
  - Abnormal faeces [Recovered/Resolved]
  - Myalgia [Not Recovered/Not Resolved]
  - Taste disorder [Not Recovered/Not Resolved]
  - Weight increased [Unknown]
  - Stoma site oedema [Recovered/Resolved]
  - Medical device site scab [Not Recovered/Not Resolved]
  - Freezing phenomenon [Not Recovered/Not Resolved]
  - Constipation [Recovered/Resolved]
  - Bradykinesia [Not Recovered/Not Resolved]
  - Memory impairment [Not Recovered/Not Resolved]
  - Device difficult to use [Unknown]
  - Muscle rigidity [Not Recovered/Not Resolved]
  - Stoma site reaction [Recovered/Resolved]
  - Plastic surgery [Unknown]
  - Abnormal faeces [Not Recovered/Not Resolved]
  - Restlessness [Recovered/Resolved]
  - Behaviour disorder [Not Recovered/Not Resolved]
  - Muscle spasms [Not Recovered/Not Resolved]
  - Pain [Not Recovered/Not Resolved]
  - Stoma site erythema [Recovered/Resolved]
  - Stoma site inflammation [Recovering/Resolving]
  - On and off phenomenon [Not Recovered/Not Resolved]
  - Speech disorder [Not Recovered/Not Resolved]
  - Nocturia [Recovering/Resolving]
  - Psychomotor hyperactivity [Not Recovered/Not Resolved]
  - Stoma site candida [Unknown]
  - Flatulence [Unknown]
  - Diarrhoea [Not Recovered/Not Resolved]
  - Fibroma [Not Recovered/Not Resolved]
  - Urinary tract infection [Not Recovered/Not Resolved]
  - Discomfort [Not Recovered/Not Resolved]
  - Restlessness [Not Recovered/Not Resolved]
  - Stoma site erythema [Recovering/Resolving]
  - Dyskinesia [Recovered/Resolved]
  - Gait disturbance [Not Recovered/Not Resolved]
  - Irritable bowel syndrome [Not Recovered/Not Resolved]
  - Dystonia [Not Recovered/Not Resolved]
  - Weight increased [Recovered/Resolved]
  - Stoma site pain [Not Recovered/Not Resolved]
  - Polyneuropathy [Not Recovered/Not Resolved]
  - Stoma site haemorrhage [Not Recovered/Not Resolved]
  - Stoma site oedema [Not Recovered/Not Resolved]
  - Hallucination [Recovered/Resolved]
  - Impulse-control disorder [Not Recovered/Not Resolved]
  - Cognitive disorder [Not Recovered/Not Resolved]
  - Stoma site discharge [Recovered/Resolved]
  - Terminal insomnia [Recovering/Resolving]
  - Memory impairment [Unknown]

NARRATIVE: CASE EVENT DATE: 2020
